FAERS Safety Report 9667903 (Version 2)
Quarter: 2013Q4

REPORT INFORMATION
  Report Type: Report from Study
  Country: JP (occurrence: JP)
  Receive Date: 20131104
  Receipt Date: 20131104
  Transmission Date: 20140711
  Serious: Yes (Hospitalization)
  Sender: FDA-Public Use
  Company Number: JP-TAKEDA-2013TJP001112

PATIENT
  Age: 87 Year
  Sex: Female
  Weight: 43.8 kg

DRUGS (7)
  1. LANSOPRAZOLE [Suspect]
     Indication: PROPHYLAXIS AGAINST GASTROINTESTINAL ULCER
     Dosage: 15 MG, QD
     Route: 048
     Dates: start: 20110909
  2. BAYASPIRIN [Concomitant]
     Indication: THROMBOSIS PROPHYLAXIS
     Dosage: 100 MG, 1 DAYS
     Route: 048
  3. URSO [Concomitant]
     Dosage: 600 MG, 1 DAYS
     Route: 048
  4. OPALMON [Concomitant]
     Dosage: 15 ?G, 1 DAYS
     Route: 048
  5. NITOROL R [Concomitant]
     Indication: ANGINA PECTORIS
     Dosage: 40 MG, 1 DAYS
     Route: 048
  6. ADALAT CR [Concomitant]
     Indication: ANGINA PECTORIS
     Dosage: 40 MG, 1 DAYS
     Route: 048
  7. LUPRAC [Concomitant]
     Dosage: 8 MG, 1 DAYS
     Route: 048
     Dates: start: 20120227

REACTIONS (4)
  - Pleural effusion [Recovering/Resolving]
  - Pleural effusion [Recovering/Resolving]
  - Pleural effusion [Recovering/Resolving]
  - Pleural effusion [Recovering/Resolving]
